FAERS Safety Report 22643961 (Version 4)
Quarter: 2024Q2

REPORT INFORMATION
  Report Type: Spontaneous
  Country: PL (occurrence: PL)
  Receive Date: 20230627
  Receipt Date: 20240429
  Transmission Date: 20240716
  Serious: Yes (Hospitalization, Other)
  Sender: FDA-Public Use
  Company Number: PL-ASTELLAS-2023US019095

PATIENT
  Age: 59 Year
  Sex: Female

DRUGS (5)
  1. XOSPATA [Suspect]
     Active Substance: GILTERITINIB
     Indication: Acute myeloid leukaemia recurrent
     Route: 065
     Dates: start: 20230321
  2. XOSPATA [Suspect]
     Active Substance: GILTERITINIB
     Indication: Tyrosine kinase mutation
     Route: 065
  3. XOSPATA [Suspect]
     Active Substance: GILTERITINIB
     Indication: FLT3 gene mutation
     Dosage: 80 MG, UNKNOWN FREQ. (REDUCED DOSE, TREATMENT WAS RESUMED AT A DOSE 80 MG UNDER TOXIC CONTROL)
     Route: 065
  4. AZACITIDINE [Concomitant]
     Active Substance: AZACITIDINE
     Indication: Plasma cell myeloma
     Dosage: UNK UNK, 5-DAY
     Route: 065
  5. AZACITIDINE [Concomitant]
     Active Substance: AZACITIDINE
     Dosage: UNK UNK, UNKNOWN FREQ.
     Route: 065

REACTIONS (10)
  - Haematotoxicity [Unknown]
  - Myelosuppression [Unknown]
  - Pancytopenia [Unknown]
  - Hepatotoxicity [Unknown]
  - Musculoskeletal toxicity [Unknown]
  - Blood creatine phosphokinase increased [Unknown]
  - Transplantation complication [Recovered/Resolved]
  - Bone marrow failure [Unknown]
  - Product use issue [Recovered/Resolved]
  - Off label use [Recovered/Resolved]

NARRATIVE: CASE EVENT DATE: 20230404
